FAERS Safety Report 9678345 (Version 1)
Quarter: 2013Q4

REPORT INFORMATION
  Report Type: Spontaneous
  Country: None (occurrence: None)
  Receive Date: 20131106
  Receipt Date: 20131106
  Transmission Date: 20140711
  Serious: Yes (Other)
  Sender: FDA-Public Use
  Company Number: ADR-2013-01475

PATIENT
  Sex: Male

DRUGS (4)
  1. BACLOFEN [Suspect]
     Indication: PAIN
  2. FENTANYL [Suspect]
     Route: 037
  3. KETAMINE [Suspect]
  4. MORPHINE [Suspect]

REACTIONS (18)
  - Back pain [None]
  - Device breakage [None]
  - Back pain [None]
  - Fatigue [None]
  - Weight increased [None]
  - Constipation [None]
  - Nocturia [None]
  - Arthralgia [None]
  - Arthritis [None]
  - Device failure [None]
  - Lumbar spinal stenosis [None]
  - Pain in extremity [None]
  - Arthropathy [None]
  - Muscle spasms [None]
  - Device occlusion [None]
  - Spinal osteoarthritis [None]
  - Drug withdrawal syndrome [None]
  - Tremor [None]
